FAERS Safety Report 8583814-6 (Version None)
Quarter: 2012Q3

REPORT INFORMATION
  Report Type: 
  Country: None (occurrence: None)
  Receive Date: 20120810
  Receipt Date: 20120730
  Transmission Date: 20120928
  Serious: Yes (Hospitalization, Disabling, Other)
  Sender: FDA-Public Use
  Company Number: PR-MERCK-1112USA02420

PATIENT

DRUGS (4)
  1. FOSAMAX [Suspect]
     Indication: OSTEOPENIA
  2. FOSAMAX PLUS D [Suspect]
     Indication: OSTEOPOROSIS
     Dosage: 70 MG, QW
     Route: 048
     Dates: start: 20090101
  3. FOSAMAX [Suspect]
     Indication: OSTEOPOROSIS
     Dosage: 70 MG, QD
     Route: 048
     Dates: start: 20000101, end: 20110501
  4. FOSAMAX PLUS D [Suspect]
     Indication: OSTEOPENIA

REACTIONS (55)
  - FEMUR FRACTURE [None]
  - ADVERSE EVENT [None]
  - MUSCULOSKELETAL DISORDER [None]
  - BALANCE DISORDER [None]
  - ADVERSE DRUG REACTION [None]
  - SKIN DISORDER [None]
  - MUSCLE SPASMS [None]
  - UTERINE DISORDER [None]
  - DENTAL CARIES [None]
  - EXOSTOSIS [None]
  - PSORIATIC ARTHROPATHY [None]
  - DIVERTICULUM [None]
  - HIP FRACTURE [None]
  - RHEUMATOID ARTHRITIS [None]
  - FALL [None]
  - MUSCULAR WEAKNESS [None]
  - ANXIETY [None]
  - FACET JOINT SYNDROME [None]
  - JOINT EFFUSION [None]
  - SYNOVIAL CYST [None]
  - CARDIAC VALVE DISEASE [None]
  - DRUG HYPERSENSITIVITY [None]
  - PAIN IN EXTREMITY [None]
  - HYPERTENSION [None]
  - SPINAL OSTEOARTHRITIS [None]
  - INJURY [None]
  - HAEMORRHOIDAL HAEMORRHAGE [None]
  - NEUROPATHY PERIPHERAL [None]
  - SPONDYLOLYSIS [None]
  - LACUNAR INFARCTION [None]
  - OSTEOARTHRITIS [None]
  - COUGH [None]
  - DYSPNOEA [None]
  - CEREBRAL ISCHAEMIA [None]
  - NAUSEA [None]
  - SPONDYLOLISTHESIS [None]
  - FOOT FRACTURE [None]
  - BONE DISORDER [None]
  - GAIT DISTURBANCE [None]
  - ALOPECIA [None]
  - ARTHRALGIA [None]
  - POST PROCEDURAL HAEMORRHAGE [None]
  - DEMYELINATING POLYNEUROPATHY [None]
  - INTERVERTEBRAL DISC PROTRUSION [None]
  - DIZZINESS [None]
  - CONSTIPATION [None]
  - PELVIC FRACTURE [None]
  - LUMBAR VERTEBRAL FRACTURE [None]
  - APPENDIX DISORDER [None]
  - PATELLOFEMORAL PAIN SYNDROME [None]
  - TREMOR [None]
  - HEPATIC ENZYME INCREASED [None]
  - INAPPROPRIATE SCHEDULE OF DRUG ADMINISTRATION [None]
  - POOR QUALITY SLEEP [None]
  - BACK PAIN [None]
